FAERS Safety Report 8998254 (Version 1)
Quarter: 2013Q1

REPORT INFORMATION
  Report Type: Spontaneous
  Country: US (occurrence: US)
  Receive Date: 20130104
  Receipt Date: 20130104
  Transmission Date: 20140127
  Serious: Yes (Other)
  Sender: FDA-Public Use
  Company Number: US-PFIZER INC-2012319515

PATIENT
  Sex: Male

DRUGS (2)
  1. ENBREL [Suspect]
     Indication: PSORIASIS
     Dosage: UNK
  2. METHOTREXATE SODIUM [Suspect]
     Dosage: UNK

REACTIONS (2)
  - Multiple sclerosis [Recovered/Resolved]
  - Psoriasis [Unknown]
